FAERS Safety Report 13685278 (Version 2)
Quarter: 2017Q2

REPORT INFORMATION
  Report Type: Spontaneous
  Country: US (occurrence: US)
  Receive Date: 20170623
  Receipt Date: 20170630
  Transmission Date: 20170830
  Serious: Yes (Other)
  Sender: FDA-Public Use
  Company Number: US-GLAXOSMITHKLINE-US2017096460

PATIENT
  Age: 49 Year
  Sex: Female

DRUGS (7)
  1. ZOLOFT [Concomitant]
     Active Substance: SERTRALINE HYDROCHLORIDE
  2. PAXIL [Suspect]
     Active Substance: PAROXETINE HYDROCHLORIDE
     Indication: BIPOLAR DISORDER
     Dosage: 50 MG
     Route: 048
     Dates: start: 201702, end: 201704
  3. TRAMADOL. [Concomitant]
     Active Substance: TRAMADOL
  4. REMERON [Concomitant]
     Active Substance: MIRTAZAPINE
  5. LAMICTAL [Suspect]
     Active Substance: LAMOTRIGINE
     Indication: BIPOLAR DISORDER
     Dosage: 25 MG, 1D
     Route: 048
     Dates: start: 201702
  6. PAXIL [Suspect]
     Active Substance: PAROXETINE HYDROCHLORIDE
     Indication: PANIC ATTACK
  7. LAMICTAL [Suspect]
     Active Substance: LAMOTRIGINE
     Indication: PANIC ATTACK
     Dosage: 100 MG, UNK

REACTIONS (8)
  - Pain [Recovered/Resolved]
  - Furuncle [Recovered/Resolved]
  - Diarrhoea [Recovered/Resolved]
  - Condition aggravated [Unknown]
  - Panic attack [Unknown]
  - Bipolar disorder [Unknown]
  - Headache [Recovered/Resolved]
  - Drug ineffective [Recovered/Resolved]

NARRATIVE: CASE EVENT DATE: 201702
